FAERS Safety Report 18000396 (Version 1)
Quarter: 2020Q3

REPORT INFORMATION
  Report Type: Spontaneous
  Country: PT (occurrence: PT)
  Receive Date: 20200709
  Receipt Date: 20200709
  Transmission Date: 20201103
  Serious: Yes (Other)
  Sender: FDA-Public Use
  Company Number: PT-MYLANLABS-2020M1059252

PATIENT
  Age: 37 Year
  Sex: Female

DRUGS (2)
  1. TERBINAFINE. [Suspect]
     Active Substance: TERBINAFINE
     Indication: TRICHOPHYTOSIS
     Dosage: 250 MILLIGRAM, QD, 250MG/DAY
     Route: 048
  2. TERBINAFINE. [Suspect]
     Active Substance: TERBINAFINE
     Indication: BODY TINEA
     Dosage: UNK

REACTIONS (4)
  - Rash [Recovered/Resolved]
  - Skin plaque [Recovered/Resolved]
  - Hyperkeratosis [Recovered/Resolved]
  - Subacute cutaneous lupus erythematosus [Recovered/Resolved]
